FAERS Safety Report 4301092-0 (Version None)
Quarter: 2004Q1

REPORT INFORMATION
  Report Type: 
  Country: None (occurrence: None)
  Receive Date: 20040218
  Receipt Date: 20040211
  Transmission Date: 20041129
  Serious: Yes (Hospitalization)
  Sender: FDA-Public Use
  Company Number: 2004198642US

PATIENT
  Age: 35 Year
  Sex: Male
  Weight: 103 kg

DRUGS (25)
  1. VANCOMYCIN [Suspect]
     Indication: PNEUMONIA STAPHYLOCOCCAL
     Dosage: SEE IMAGE, IV
     Route: 042
     Dates: start: 20031214, end: 20031226
  2. VANCOMYCIN [Suspect]
     Indication: PNEUMONIA STAPHYLOCOCCAL
     Dosage: SEE IMAGE, IV
     Route: 042
     Dates: start: 20031226
  3. INSULIN [Concomitant]
  4. NICODERM [Concomitant]
  5. TYLENOL (CAPLET) [Concomitant]
  6. LOVENOX [Concomitant]
  7. PERIDEX (CHLORHEXIDINE GLUCONATE) [Concomitant]
  8. METOPROLOL [Concomitant]
  9. AFRIN (OXYMETAZOLINE HYDROCHLORIDE, PHENYLMERCURIC ACETATE, AMINOACETI [Concomitant]
  10. LEVOPHED [Concomitant]
  11. VERSED [Concomitant]
  12. FENTANYL [Concomitant]
  13. AMIKACIN [Concomitant]
  14. LEVAQUIN [Concomitant]
  15. VASOPRESSIN INJECTION (VASOPRESSIN INJECTION) [Concomitant]
  16. DIFLUCAN [Concomitant]
  17. CORTROSYN (TETRACOSACTIDE) [Concomitant]
  18. SENOKOT [Concomitant]
  19. DULCOLAX [Concomitant]
  20. REGLAN [Concomitant]
  21. ERYTHROMYCIN ETHYLSUCCINATE [Concomitant]
  22. LORTAB [Concomitant]
  23. ATIVAN [Concomitant]
  24. METHADONE HCL [Concomitant]
  25. MILK OF MAGNESIA TAB [Concomitant]

REACTIONS (1)
  - WOUND INFECTION STAPHYLOCOCCAL [None]
